FAERS Safety Report 7201771-1 (Version None)
Quarter: 2010Q4

REPORT INFORMATION
  Report Type: 
  Country: None (occurrence: None)
  Receive Date: 20101215
  Receipt Date: 20101130
  Transmission Date: 20110411
  Serious: Yes (Hospitalization)
  Sender: FDA-Public Use
  Company Number: 022903

PATIENT
  Sex: Male

DRUGS (22)
  1. ROTIGOTINE (ROTIGOTINE) [Suspect]
     Indication: PARKINSON'S DISEASE
     Dosage: (2 MG TRANSDERMAL), (4 MG TRANSDERMAL), (6 MG TRANSDERMAL), (8 MG TRANSDERMAL)
     Route: 062
     Dates: start: 20100903, end: 20100909
  2. ROTIGOTINE (ROTIGOTINE) [Suspect]
     Indication: PARKINSON'S DISEASE
     Dosage: (2 MG TRANSDERMAL), (4 MG TRANSDERMAL), (6 MG TRANSDERMAL), (8 MG TRANSDERMAL)
     Route: 062
     Dates: start: 20100910, end: 20100916
  3. ROTIGOTINE (ROTIGOTINE) [Suspect]
     Indication: PARKINSON'S DISEASE
     Dosage: (2 MG TRANSDERMAL), (4 MG TRANSDERMAL), (6 MG TRANSDERMAL), (8 MG TRANSDERMAL)
     Route: 062
     Dates: start: 20100917, end: 20100923
  4. ROTIGOTINE (ROTIGOTINE) [Suspect]
     Indication: PARKINSON'S DISEASE
     Dosage: (2 MG TRANSDERMAL), (4 MG TRANSDERMAL), (6 MG TRANSDERMAL), (8 MG TRANSDERMAL)
     Route: 062
     Dates: start: 20100924
  5. RINLAXER (RINLAXER) [Suspect]
     Indication: COMPRESSION FRACTURE
     Dosage: (375 MG ORAL)
     Route: 048
     Dates: start: 20100825, end: 20101122
  6. LOXONIN /00890702/ (LOXONIN) (NOT SPECIFIED) [Suspect]
     Indication: COMPRESSION FRACTURE
     Dosage: (180 MG ORAL)
     Route: 048
     Dates: start: 20100825, end: 20101122
  7. INDOMETHACIN [Suspect]
     Indication: COMPRESSION FRACTURE
     Dosage: (QS TRANSDERMAL)
     Route: 062
     Dates: start: 20100827, end: 20101122
  8. REBAMIPIDE [Concomitant]
  9. MENESIT [Concomitant]
  10. ARTANE [Concomitant]
  11. DOPS [Concomitant]
  12. ARICEPT [Concomitant]
  13. TAMSULOSIN HCL [Concomitant]
  14. LUDIOMIL /00331902/ [Concomitant]
  15. DIAZEPAM [Concomitant]
  16. TRYPTANOL /00002202/ [Concomitant]
  17. LENDORMIN [Concomitant]
  18. SILECE [Concomitant]
  19. VOLTAREN [Concomitant]
  20. FERROMIA /00023516/ [Concomitant]
  21. UBRETID [Concomitant]
  22. UNKNOWN [Concomitant]

REACTIONS (4)
  - BLOOD PRESSURE DECREASED [None]
  - GASTRIC ULCER HAEMORRHAGE [None]
  - IRON DEFICIENCY ANAEMIA [None]
  - SYNCOPE [None]
